FAERS Safety Report 8971517 (Version 2)
Quarter: 2013Q1

REPORT INFORMATION
  Report Type: Spontaneous
  Country: ES (occurrence: ES)
  Receive Date: 20121218
  Receipt Date: 20130122
  Transmission Date: 20140127
  Serious: Yes (Other)
  Sender: FDA-Public Use
  Company Number: PHHY2012ES115873

PATIENT
  Age: 50 Year
  Sex: Male

DRUGS (2)
  1. EVEROLIMUS [Suspect]
     Indication: RENAL CANCER
     Dosage: 10 MG, DAILY
     Route: 048
     Dates: start: 20121006, end: 20121206
  2. EVEROLIMUS [Suspect]
     Dosage: UNK
     Dates: start: 20121212

REACTIONS (3)
  - Erythema nodosum [Unknown]
  - Pain in extremity [Unknown]
  - Erythema [Unknown]
